FAERS Safety Report 11026970 (Version 1)
Quarter: 2015Q2

REPORT INFORMATION
  Report Type: Spontaneous
  Country: FR (occurrence: FR)
  Receive Date: 20150414
  Receipt Date: 20150414
  Transmission Date: 20150821
  Serious: Yes (Hospitalization)
  Sender: FDA-Public Use
  Company Number: FR-PFIZER INC-2015120357

PATIENT
  Age: 77 Year
  Sex: Female

DRUGS (12)
  1. EFFEXOR LP [Suspect]
     Active Substance: VENLAFAXINE HYDROCHLORIDE
     Dosage: 112.5 MG, DAILY (75 MG IN THE MORNNING AND 37.5 MG AT NOON)
     Route: 048
  2. EFFERALGAN CODEINE [Concomitant]
     Active Substance: ACETAMINOPHEN\CODEINE PHOSPHATE
     Dosage: 500 MG, 3X/DAY
  3. LOVENOX [Interacting]
     Active Substance: ENOXAPARIN SODIUM
     Dosage: 0.4 MG, 1X/DAY
     Route: 042
     Dates: start: 20150211, end: 20150219
  4. LOVENOX [Interacting]
     Active Substance: ENOXAPARIN SODIUM
     Dosage: 0.4 MG, 1X/DAY
     Route: 042
  5. EFFERALGAN [Concomitant]
     Active Substance: ACETAMINOPHEN
     Dosage: 500 MG, 3X/DAY
  6. FORLAX [Concomitant]
     Active Substance: POLYETHYLENE GLYCOL 4000
     Dosage: 10 G, DAILY
  7. ZYLORIC [Concomitant]
     Active Substance: ALLOPURINOL
     Dosage: 100 MG, DAILY
  8. FLUDEX [Concomitant]
     Active Substance: INDAPAMIDE
     Dosage: 1.5 MG, DAILY
  9. TOPALGIC [Concomitant]
     Active Substance: TRAMADOL
     Dosage: 50 MG, 3X/DAY
  10. BETASERC [Concomitant]
     Active Substance: BETAHISTINE
     Dosage: 24 MG, 2X/DAY
  11. ZOLPIDEM [Concomitant]
     Active Substance: ZOLPIDEM\ZOLPIDEM TARTRATE
     Dosage: 10 MG, DAILY
  12. TAREG [Concomitant]
     Active Substance: VALSARTAN
     Dosage: 80 MG, DAILY

REACTIONS (5)
  - Duodenal ulcer [Unknown]
  - Melaena [Recovered/Resolved]
  - Shock haemorrhagic [Recovered/Resolved]
  - Drug interaction [Recovered/Resolved]
  - Anaemia [Recovering/Resolving]

NARRATIVE: CASE EVENT DATE: 20150219
